FAERS Safety Report 5429779-7 (Version None)
Quarter: 2007Q3

REPORT INFORMATION
  Report Type: 
  Country: None (occurrence: None)
  Receive Date: 20070827
  Receipt Date: 20070814
  Transmission Date: 20080115
  Serious: Yes (Life-Threatening)
  Sender: FDA-Public Use
  Company Number: 8026035

PATIENT

DRUGS (4)
  1. KEPPRA [Suspect]
     Indication: CONVULSION
     Dosage: 250 MG 2/D TRP
     Route: 064
     Dates: start: 20061229, end: 20061231
  2. KEPPRA [Suspect]
     Indication: CONVULSION
     Dosage: 500 MG 2/D TRP
     Route: 064
     Dates: start: 20070101, end: 20070801
  3. FOLIC ACID [Concomitant]
  4. PRENATAL VITAMINS /01549301/ [Concomitant]

REACTIONS (2)
  - BRADYCARDIA FOETAL [None]
  - DRUG EXPOSURE DURING PREGNANCY [None]
